FAERS Safety Report 6507014-6 (Version None)
Quarter: 2009Q4

REPORT INFORMATION
  Report Type: 
  Country: None (occurrence: None)
  Receive Date: 20091221
  Receipt Date: 20091215
  Transmission Date: 20100525
  Serious: Yes (Hospitalization, Other)
  Sender: FDA-Public Use
  Company Number: US-ELI_LILLY_AND_COMPANY-US200912003762

PATIENT
  Sex: Male

DRUGS (5)
  1. HUMULIN 70/30 [Suspect]
     Indication: DIABETES MELLITUS
     Dosage: UNK, EACH MORNING
     Dates: start: 19930101, end: 20091022
  2. LANTUS [Concomitant]
  3. FOLIC ACID [Concomitant]
  4. TYLENOL                                 /SCH/ [Concomitant]
  5. MULTI-VITAMIN [Concomitant]

REACTIONS (2)
  - DIALYSIS [None]
  - MYOCARDIAL INFARCTION [None]
